FAERS Safety Report 10084192 (Version 1)
Quarter: 2014Q2

REPORT INFORMATION
  Report Type: Spontaneous
  Country: US (occurrence: None)
  Receive Date: 20140415
  Receipt Date: 20140415
  Transmission Date: 20141212
  Serious: Yes (Hospitalization)
  Sender: FDA-Public Use
  Company Number: 2014US003156

PATIENT
  Age: 26 Year
  Sex: Male

DRUGS (1)
  1. ICLUSIG [Suspect]
     Indication: CHRONIC MYELOID LEUKAEMIA
     Route: 048
     Dates: start: 20140207, end: 20140320

REACTIONS (3)
  - Blood count abnormal [None]
  - Pyrexia [None]
  - Arthralgia [None]
